FAERS Safety Report 7079296-6 (Version None)
Quarter: 2010Q4

REPORT INFORMATION
  Report Type: 
  Country: None (occurrence: None)
  Receive Date: 20101022
  Receipt Date: 20101012
  Transmission Date: 20110411
  Serious: Yes (Life-Threatening)
  Sender: FDA-Public Use
  Company Number: 2010129843

PATIENT
  Age: 77 Year
  Sex: Female

DRUGS (10)
  1. FRAGMIN [Suspect]
     Indication: THROMBOSIS PROPHYLAXIS
     Dosage: 5000 IU, 1X/DAY, SUBCUTANEOUS
     Route: 058
     Dates: start: 20100707, end: 20100713
  2. LANSOPRAZOLE [Concomitant]
  3. TARGOSID (TEICOPLANIN) [Concomitant]
  4. AMPICILLIN [Concomitant]
  5. PIPEMID (PIPEMIDIC ACID) [Concomitant]
  6. RAMIPRIL/HYDROCHLOROTHIAZIDE (HYDROCHLOROTHIAZIDE, RAMIPRIL) [Concomitant]
  7. OPTINATE (RISEDRONATE SODIUM) [Concomitant]
  8. CEFAZOLIN SODIUM [Concomitant]
  9. METHOTREXATE [Concomitant]
  10. LIOMETACEN (INDOMETHACIN MEGLUMINE) [Concomitant]

REACTIONS (3)
  - ANAEMIA [None]
  - DISSEMINATED INTRAVASCULAR COAGULATION [None]
  - POST PROCEDURAL HAEMORRHAGE [None]
